FAERS Safety Report 4320290-3 (Version None)
Quarter: 2004Q1

REPORT INFORMATION
  Report Type: 
  Country: None (occurrence: None)
  Receive Date: 20040317
  Receipt Date: 20040302
  Transmission Date: 20041129
  Serious: Yes (Other)
  Sender: FDA-Public Use
  Company Number: BR-SHR-04-020230

PATIENT
  Age: 14 Year
  Sex: Female
  Weight: 48 kg

DRUGS (1)
  1. YASMIN [Suspect]
     Indication: MENSTRUAL DISORDER
     Dosage: 1 TAB(S), 1X/DAY, ORAL
     Route: 048
     Dates: end: 20040120

REACTIONS (6)
  - ABDOMINAL PAIN UPPER [None]
  - BLOOD BILIRUBIN UNCONJUGATED INCREASED [None]
  - HAEMOLYSIS [None]
  - NAUSEA [None]
  - OCULAR ICTERUS [None]
  - VOMITING [None]
